FAERS Safety Report 7629187 (Version 4)
Quarter: 2013Q1

REPORT INFORMATION
  Report Type: Spontaneous
  Country: US (occurrence: US)
  Receive Date: 20101014
  Receipt Date: 20130211
  Transmission Date: 20140127
  Serious: Yes (Other)
  Sender: FDA-Public Use
  Company Number: US-JNJFOC-20100604190

PATIENT
  Age: 41 None
  Sex: Male

DRUGS (2)
  1. LEVAQUIN [Suspect]
     Indication: SINUSITIS
     Route: 048
  2. MEDROL DOSE PACK [Suspect]
     Indication: SINUSITIS
     Route: 065

REACTIONS (10)
  - Tendon rupture [Unknown]
  - Rotator cuff syndrome [Unknown]
  - Meniscus injury [Unknown]
  - Tendonitis [Recovering/Resolving]
  - Synovitis [Unknown]
  - Rotator cuff syndrome [Unknown]
  - Bursitis [Unknown]
  - Dermatitis [Unknown]
  - Pain [Unknown]
  - Arthralgia [Unknown]
